FAERS Safety Report 6538908-3 (Version None)
Quarter: 2010Q1

REPORT INFORMATION
  Report Type: 
  Country: None (occurrence: None)
  Receive Date: 20100115
  Receipt Date: 20100112
  Transmission Date: 20100710
  Serious: Yes (Hospitalization)
  Sender: FDA-Public Use
  Company Number: FR-ROCHE-672416

PATIENT
  Sex: Female
  Weight: 57 kg

DRUGS (12)
  1. BONIVA [Suspect]
     Indication: DRUG USE FOR UNKNOWN INDICATION
     Dosage: THERAPY START: BEFORE SEP 2009.
     Route: 048
     Dates: end: 20091022
  2. INFLUVAC [Suspect]
     Indication: DRUG USE FOR UNKNOWN INDICATION
     Route: 030
     Dates: start: 20091015, end: 20091015
  3. FELDENE [Suspect]
     Indication: DRUG USE FOR UNKNOWN INDICATION
     Dosage: THERAPY START: BEFORE SEP 2009.
     Route: 048
     Dates: end: 20091022
  4. PARACETAMOL [Suspect]
     Indication: DRUG USE FOR UNKNOWN INDICATION
     Route: 048
     Dates: start: 20090901, end: 20091022
  5. KETOPROFEN [Suspect]
     Indication: DRUG USE FOR UNKNOWN INDICATION
     Dosage: THERAPY START: BEFORE SEP 2009.
     Route: 061
     Dates: end: 20091022
  6. ART 50 [Suspect]
     Indication: DRUG USE FOR UNKNOWN INDICATION
     Dosage: THERAPY START: BEFORE SEP 2009.
     Route: 048
     Dates: end: 20091021
  7. LEXOMIL [Concomitant]
  8. FORADIL [Concomitant]
  9. NULYTELY [Concomitant]
  10. CALTRATE 600 [Concomitant]
     Dosage: DRUG: CALTRATE 600 D3
  11. DAFLON [Concomitant]
  12. MIFLASONE [Concomitant]

REACTIONS (1)
  - THROMBOCYTOPENIA [None]
